FAERS Safety Report 14281097 (Version 1)
Quarter: 2017Q4

REPORT INFORMATION
  Report Type: Spontaneous
  Country: US (occurrence: US)
  Receive Date: 20171213
  Receipt Date: 20171213
  Transmission Date: 20180321
  Serious: No
  Sender: FDA-Public Use
  Company Number: US-BRISTOL-MYERS SQUIBB COMPANY-BMS-2017-111933

PATIENT
  Age: 78 Year
  Sex: Male

DRUGS (1)
  1. ELIQUIS [Suspect]
     Active Substance: APIXABAN
     Indication: HEART RATE IRREGULAR
     Dosage: 5 MG, TID
     Route: 048

REACTIONS (3)
  - Somnolence [Unknown]
  - Fatigue [Unknown]
  - Product use in unapproved indication [Unknown]
